FAERS Safety Report 8839906 (Version 1)
Quarter: 2012Q4

REPORT INFORMATION
  Report Type: 
  Country: DE (occurrence: DE)
  Receive Date: 20121015
  Receipt Date: 20121015
  Transmission Date: 20130627
  Serious: Yes (Hospitalization)
  Sender: FDA-Public Use
  Company Number: PHHY2012DE090512

PATIENT
  Age: 42 Year
  Sex: Male

DRUGS (1)
  1. EXTAVIA [Suspect]
     Indication: MULTIPLE SCLEROSIS
     Dosage: 1 ml, UNK
     Route: 058
     Dates: start: 20120429

REACTIONS (1)
  - Aggression [Not Recovered/Not Resolved]
